FAERS Safety Report 18395082 (Version 2)
Quarter: 2020Q4

REPORT INFORMATION
  Report Type: Spontaneous
  Country: JP (occurrence: JP)
  Receive Date: 20201016
  Receipt Date: 20201102
  Transmission Date: 20210114
  Serious: Yes (Other)
  Sender: FDA-Public Use
  Company Number: JP-009507513-2009JPN002738J

PATIENT
  Age: 32 Year
  Sex: Female

DRUGS (4)
  1. BELSOMRA [Suspect]
     Active Substance: SUVOREXANT
     Indication: INSOMNIA
     Dosage: 20 MILLIGRAM, QD
     Route: 048
     Dates: start: 20171018, end: 20200912
  2. CYMBALTA [Concomitant]
     Active Substance: DULOXETINE HYDROCHLORIDE
     Dosage: 40 MILLIGRAM
     Route: 065
  3. HALCION [Concomitant]
     Active Substance: TRIAZOLAM
     Dosage: 0.25 MILLIGRAM
     Route: 065
     Dates: start: 20181011
  4. DEPAKENE [Concomitant]
     Active Substance: VALPROIC ACID
     Dosage: 400 MILLIGRAM
     Route: 065

REACTIONS (2)
  - Narcolepsy [Unknown]
  - Sleep attacks [Recovered/Resolved]

NARRATIVE: CASE EVENT DATE: 202009
